FAERS Safety Report 7342475-4 (Version None)
Quarter: 2011Q1

REPORT INFORMATION
  Report Type: 
  Country: None (occurrence: None)
  Receive Date: 20110228
  Receipt Date: 20110208
  Transmission Date: 20110831
  Serious: Yes (Death)
  Sender: FDA-Public Use
  Company Number: 2011020082

PATIENT
  Age: 41 Year
  Sex: Female

DRUGS (5)
  1. METFORMIN HCL [Suspect]
  2. OXYCODONE HCL [Suspect]
  3. METHAMPHETAMINE HYDROCHLORIDE [Suspect]
  4. ALPRAZOLAM [Suspect]
  5. CARISOPRODOL (CARISOPRODOL) [Suspect]

REACTIONS (2)
  - RESPIRATORY ARREST [None]
  - CARDIAC ARREST [None]
